FAERS Safety Report 21885015 (Version 1)
Quarter: 2023Q1

REPORT INFORMATION
  Report Type: Spontaneous
  Country: DE (occurrence: DE)
  Receive Date: 20230119
  Receipt Date: 20230119
  Transmission Date: 20230417
  Serious: Yes (Other)
  Sender: FDA-Public Use
  Company Number: DE-ROCHE-3228362

PATIENT
  Age: 78 Year
  Sex: Male

DRUGS (19)
  1. CYTARABINE [Suspect]
     Active Substance: CYTARABINE
     Indication: Diffuse large B-cell lymphoma
     Dosage: BEAM + AUTO-SCT
     Route: 065
     Dates: start: 20140501, end: 20140601
  2. CYTARABINE [Suspect]
     Active Substance: CYTARABINE
     Dosage: UNK
     Route: 065
     Dates: start: 20140501, end: 20140601
  3. BENDAMUSTINE HYDROCHLORIDE [Suspect]
     Active Substance: BENDAMUSTINE HYDROCHLORIDE
     Indication: Diffuse large B-cell lymphoma
     Dosage: POLATUZUMAB WITH RITUXIMAB AND BENDAMUSTIN
     Route: 065
     Dates: start: 20220311, end: 20220810
  4. BENDAMUSTINE HYDROCHLORIDE [Suspect]
     Active Substance: BENDAMUSTINE HYDROCHLORIDE
     Dosage: POLATUZUMAB WITH RITUXIMAB AND BENDAMUSTIN
     Route: 065
     Dates: start: 20200701, end: 20201101
  5. CISPLATIN [Suspect]
     Active Substance: CISPLATIN
     Indication: Diffuse large B-cell lymphoma
     Dosage: UNK
     Route: 065
     Dates: start: 20140501, end: 20140601
  6. CYCLOPHOSPHAMIDE [Suspect]
     Active Substance: CYCLOPHOSPHAMIDE
     Indication: Diffuse large B-cell lymphoma
     Dosage: R-CHOP
     Route: 065
     Dates: start: 20030901, end: 20040101
  7. ETOPOSIDE [Suspect]
     Active Substance: ETOPOSIDE
     Indication: Diffuse large B-cell lymphoma
     Dosage: BEAM + AUTO-SCT
     Route: 065
     Dates: start: 20140901, end: 20141001
  8. VINCRISTINE [Suspect]
     Active Substance: VINCRISTINE
     Indication: Diffuse large B-cell lymphoma
     Dosage: UNK
     Route: 065
     Dates: start: 20030901, end: 20040101
  9. PREDNISONE [Suspect]
     Active Substance: PREDNISONE
     Indication: Diffuse large B-cell lymphoma
     Dosage: R-CHOP
     Route: 065
     Dates: start: 20030901, end: 20040101
  10. DOXORUBICIN [Suspect]
     Active Substance: DOXORUBICIN
     Indication: Diffuse large B-cell lymphoma
     Dosage: R-CHOP
     Route: 065
     Dates: start: 20030901, end: 20040101
  11. RITUXIMAB [Suspect]
     Active Substance: RITUXIMAB
     Indication: Diffuse large B-cell lymphoma
     Dosage: POLATUZUMAB WITH RITUXIMAB AND BENDAMUSTIN
     Route: 065
     Dates: start: 20200701, end: 20201101
  12. RITUXIMAB [Suspect]
     Active Substance: RITUXIMAB
     Dosage: R-CHOP
     Route: 065
     Dates: start: 20030901, end: 20040101
  13. RITUXIMAB [Suspect]
     Active Substance: RITUXIMAB
     Dosage: R-DHAP
     Route: 065
     Dates: start: 20140501, end: 20140601
  14. RITUXIMAB [Suspect]
     Active Substance: RITUXIMAB
     Dosage: POLATUZUMAB WITH RITUXIMAB AND BENDAMUSTIN
     Route: 065
     Dates: start: 20220311, end: 20220810
  15. DEXAMETHASONE [Suspect]
     Active Substance: DEXAMETHASONE
     Indication: Diffuse large B-cell lymphoma
     Dosage: UNK
     Route: 065
     Dates: start: 20140501, end: 20140601
  16. MELPHALAN [Suspect]
     Active Substance: MELPHALAN
     Indication: Diffuse large B-cell lymphoma
     Dosage: BEAM + AUTO-SCT
     Route: 065
     Dates: start: 20140901, end: 20141001
  17. POLATUZUMAB VEDOTIN [Suspect]
     Active Substance: POLATUZUMAB VEDOTIN
     Indication: Diffuse large B-cell lymphoma
     Dosage: POLATUZUMAB WITH RITUXIMAB AND BENDAMUSTIN
     Route: 065
     Dates: start: 20200701, end: 20201101
  18. POLATUZUMAB VEDOTIN [Suspect]
     Active Substance: POLATUZUMAB VEDOTIN
     Dosage: POLATUZUMAB WITH RITUXIMAB AND BENDAMUSTIN
     Dates: start: 20220311, end: 20220810
  19. CARMUSTINE [Suspect]
     Active Substance: CARMUSTINE
     Indication: Diffuse large B-cell lymphoma
     Dosage: BEAM + AUTO-SCT
     Route: 065
     Dates: start: 20140901, end: 20141001

REACTIONS (1)
  - Lymphoma [Not Recovered/Not Resolved]
